FAERS Safety Report 7006071 (Version 11)
Quarter: 2014Q3

REPORT INFORMATION
  Report Type: Spontaneous
  Country: US (occurrence: US)
  Receive Date: 20090519
  Receipt Date: 20140826
  Transmission Date: 20150326
  Serious: Yes (Hospitalization, Disabling, Other)
  Sender: FDA-Public Use
  Company Number: US-009507513-2008-174108-NL

PATIENT
  Sex: Female
  Weight: 77.98 kg

DRUGS (3)
  1. LEVOTHYROXINE SODIUM. [Concomitant]
     Active Substance: LEVOTHYROXINE SODIUM
     Indication: PRODUCT USED FOR UNKNOWN INDICATION
     Dosage: 25 ?G, UNK
     Route: 048
     Dates: start: 200811
  2. NUVARING [Suspect]
     Active Substance: ETHINYL ESTRADIOL\ETONOGESTREL
     Indication: CONTRACEPTION
     Dosage: 3 WEEKS IN, 1 WEEK OUT, CONTINUING: NO
     Route: 067
     Dates: start: 20040804, end: 20041214
  3. MK-0805 [Concomitant]
     Active Substance: FUROSEMIDE
     Indication: PRODUCT USED FOR UNKNOWN INDICATION
     Dosage: 20 MG, QD

REACTIONS (23)
  - Livedo reticularis [Not Recovered/Not Resolved]
  - Protein S decreased [Unknown]
  - Chest pain [Unknown]
  - Lesion excision [Unknown]
  - Varicose vein [Unknown]
  - Transient ischaemic attack [Unknown]
  - Folliculitis [Recovering/Resolving]
  - Tendon rupture [Unknown]
  - Oedema [Recovering/Resolving]
  - Skin lesion [Unknown]
  - Dyspnoea exertional [Recovering/Resolving]
  - Escherichia urinary tract infection [Unknown]
  - Post procedural haemorrhage [Unknown]
  - Superior sagittal sinus thrombosis [Recovered/Resolved with Sequelae]
  - Haemorrhagic cerebral infarction [Recovered/Resolved with Sequelae]
  - Musculoskeletal pain [Recovering/Resolving]
  - Asthenia [Unknown]
  - Fall [Unknown]
  - Poor venous access [Unknown]
  - Convulsion [Recovered/Resolved]
  - Hypercoagulation [Unknown]
  - Sclerotherapy [Recovering/Resolving]
  - Deep vein thrombosis [Unknown]

NARRATIVE: CASE EVENT DATE: 20041015
